FAERS Safety Report 23720283 (Version 4)
Quarter: 2025Q1

REPORT INFORMATION
  Report Type: Spontaneous
  Country: US (occurrence: US)
  Receive Date: 20240408
  Receipt Date: 20250326
  Transmission Date: 20250409
  Serious: No
  Sender: PFIZER
  Company Number: US-PFIZER INC-PV202400045252

PATIENT
  Age: 80 Year
  Sex: Male
  Weight: 84.91 kg

DRUGS (2)
  1. TALZENNA [Suspect]
     Active Substance: TALAZOPARIB TOSYLATE
     Indication: Prostate cancer
     Dosage: 0.35 MG, 1X/DAY (TAKE 1 CAPSULE (0.35 MG) BY MOUTH ONCE DAILY WITH OR WITHOUT FOOD)
     Route: 048
  2. TALZENNA [Suspect]
     Active Substance: TALAZOPARIB TOSYLATE
     Indication: Tumour pain
     Dosage: 0.25 MG, 1X/DAY (0.25 MG, 1 CAPSULE ONCE DAILY FOR 30 DAYS)
     Route: 048

REACTIONS (2)
  - Illness [Unknown]
  - Fatigue [Unknown]
